FAERS Safety Report 4848175-4 (Version None)
Quarter: 2005Q4

REPORT INFORMATION
  Report Type: 
  Country: None (occurrence: None)
  Receive Date: 20051208
  Receipt Date: 20051129
  Transmission Date: 20060501
  Serious: Yes (Other)
  Sender: FDA-Public Use
  Company Number: FR-SANOFI-SYNTHELABO-A01200508307

PATIENT
  Age: 61 Year
  Sex: Male

DRUGS (3)
  1. PLAVIX [Suspect]
     Indication: ARTERIOPATHIC DISEASE
     Route: 048
     Dates: start: 20040101
  2. PREVISCAN [Suspect]
     Indication: ARTERIOPATHIC DISEASE
     Route: 048
     Dates: start: 20040101, end: 20051101
  3. FRAXODI [Suspect]
     Indication: ARTERIOPATHIC DISEASE
     Dosage: UNK
     Route: 048
     Dates: start: 20051101, end: 20051101

REACTIONS (2)
  - DRUG INTERACTION [None]
  - INTERNATIONAL NORMALISED RATIO INCREASED [None]
